FAERS Safety Report 6867328-7 (Version None)
Quarter: 2010Q3

REPORT INFORMATION
  Report Type: 
  Country: None (occurrence: None)
  Receive Date: 20100722
  Receipt Date: 20100628
  Transmission Date: 20110219
  Serious: Yes (Death)
  Sender: FDA-Public Use
  Company Number: US-MERCK-1007USA00085

PATIENT
  Age: 17 Year
  Sex: Male

DRUGS (1)
  1. EMEND [Suspect]
     Route: 048

REACTIONS (3)
  - CONSTIPATION [None]
  - DISEASE PROGRESSION [None]
  - OFF LABEL USE [None]
